FAERS Safety Report 5748291-9 (Version None)
Quarter: 2008Q2

REPORT INFORMATION
  Report Type: 
  Country: None (occurrence: None)
  Receive Date: 20080520
  Receipt Date: 20080506
  Transmission Date: 20081010
  Serious: Yes (Hospitalization)
  Sender: FDA-Public Use
  Company Number: A-NJ2007-17732

PATIENT
  Age: 77 Year
  Sex: Female
  Weight: 98 kg

DRUGS (3)
  1. TRACLEER [Suspect]
     Indication: PULMONARY ARTERIAL HYPERTENSION
     Dosage: 125MG, BID, ORAL; 6.25 MG, BID, ORAL; ORAL
     Route: 048
     Dates: start: 20060201, end: 20060301
  2. TRACLEER [Suspect]
     Indication: PULMONARY ARTERIAL HYPERTENSION
     Dosage: 125MG, BID, ORAL; 6.25 MG, BID, ORAL; ORAL
     Route: 048
     Dates: start: 20060301, end: 20070801
  3. TRACLEER [Suspect]
     Indication: PULMONARY ARTERIAL HYPERTENSION
     Dosage: 125MG, BID, ORAL; 6.25 MG, BID, ORAL; ORAL
     Route: 048
     Dates: start: 20071002, end: 20071214

REACTIONS (4)
  - CHOLECYSTITIS [None]
  - CHOLELITHIASIS [None]
  - POST PROCEDURAL BILE LEAK [None]
  - PROCEDURAL COMPLICATION [None]
